FAERS Safety Report 12982230 (Version 1)
Quarter: 2016Q4

REPORT INFORMATION
  Report Type: Spontaneous
  Country: US (occurrence: US)
  Receive Date: 20161128
  Receipt Date: 20161128
  Transmission Date: 20170207
  Serious: No
  Sender: FDA-Public Use
  Company Number: None

PATIENT
  Age: 49 Year
  Sex: Female

DRUGS (1)
  1. XELJANZ [Suspect]
     Active Substance: TOFACITINIB CITRATE
     Indication: IMMUNODEFICIENCY COMMON VARIABLE
     Route: 048
     Dates: start: 20151217

REACTIONS (2)
  - Wheelchair user [None]
  - Gait disturbance [None]

NARRATIVE: CASE EVENT DATE: 20161123
